FAERS Safety Report 19880628 (Version 1)
Quarter: 2021Q3

REPORT INFORMATION
  Report Type: Spontaneous
  Country: GB (occurrence: GB)
  Receive Date: 20210924
  Receipt Date: 20210924
  Transmission Date: 20211014
  Serious: Yes (Other)
  Sender: FDA-Public Use
  Company Number: GB-TEVA-2021-GB-1958739

PATIENT

DRUGS (1)
  1. ACITRETIN. [Suspect]
     Active Substance: ACITRETIN
     Dosage: 20 MILLIGRAM DAILY; 10 MG
     Route: 065

REACTIONS (3)
  - Erectile dysfunction [Unknown]
  - Sexual dysfunction [Unknown]
  - Libido decreased [Unknown]
